FAERS Safety Report 6626204-5 (Version None)
Quarter: 2010Q1

REPORT INFORMATION
  Report Type: 
  Country: None (occurrence: None)
  Receive Date: 20100309
  Receipt Date: 20100309
  Transmission Date: 20100710
  Serious: Yes (Hospitalization)
  Sender: FDA-Public Use
  Company Number: None

PATIENT
  Age: 23 Year
  Sex: Female
  Weight: 63.5036 kg

DRUGS (1)
  1. LUMIGEN 300UG/ ML ALLERGEN [Suspect]
     Indication: GROWTH OF EYELASHES
     Dosage: ON EYELIDS ONCE A DAY
     Dates: start: 20100216, end: 20100308

REACTIONS (1)
  - ABDOMINAL PAIN LOWER [None]
